FAERS Safety Report 12986706 (Version 1)
Quarter: 2016Q4

REPORT INFORMATION
  Report Type: Spontaneous
  Country: US (occurrence: US)
  Receive Date: 20161129
  Receipt Date: 20161129
  Transmission Date: 20170207
  Serious: No
  Sender: FDA-Public Use
  Company Number: None

PATIENT
  Age: 62 Year
  Sex: Female
  Weight: 99 kg

DRUGS (10)
  1. VITAMIN C [Concomitant]
     Active Substance: ASCORBIC ACID
  2. PROBIOTIC [Concomitant]
     Active Substance: PROBIOTICS NOS
  3. FIBER [Concomitant]
     Active Substance: PSYLLIUM HUSK
  4. MEGA RED FISH OIL [Concomitant]
  5. CALCIUM [Concomitant]
     Active Substance: CALCIUM
  6. VITAMIN B [Concomitant]
     Active Substance: VITAMIN B
  7. LANTIS INSULIN INJECTION [Concomitant]
  8. RAMIPRIL. [Concomitant]
     Active Substance: RAMIPRIL
  9. VICTOZA [Suspect]
     Active Substance: LIRAGLUTIDE
     Indication: DIABETES MELLITUS
     Dosage: ?          QUANTITY:1.2 MG;?
     Route: 055
     Dates: start: 20161031, end: 20161105
  10. BIOTIN [Concomitant]
     Active Substance: BIOTIN

REACTIONS (6)
  - Constipation [None]
  - Headache [None]
  - Malaise [None]
  - Eating disorder [None]
  - Blood glucose increased [None]
  - Gastrooesophageal reflux disease [None]

NARRATIVE: CASE EVENT DATE: 20161105
